FAERS Safety Report 6297813-0 (Version None)
Quarter: 2009Q3

REPORT INFORMATION
  Report Type: 
  Country: None (occurrence: None)
  Receive Date: 20090804
  Receipt Date: 20090804
  Transmission Date: 20100115
  Serious: Yes (Life-Threatening)
  Sender: FDA-Public Use
  Company Number: None

PATIENT
  Age: 59 Year
  Sex: Female
  Weight: 68.2 kg

DRUGS (1)
  1. FOSAMAX [Suspect]
     Indication: OSTEOPOROSIS
     Dosage: FOSAMAX ORAL, 1 X PER DAY
     Route: 048

REACTIONS (5)
  - BLINDNESS TRANSIENT [None]
  - BONE NEOPLASM MALIGNANT [None]
  - CONDITION AGGRAVATED [None]
  - HYPOTENSION [None]
  - PANIC REACTION [None]
